FAERS Safety Report 7727474-2 (Version None)
Quarter: 2011Q3

REPORT INFORMATION
  Report Type: 
  Country: None (occurrence: None)
  Receive Date: 20110902
  Receipt Date: 20110826
  Transmission Date: 20111222
  Serious: Yes (Other)
  Sender: FDA-Public Use
  Company Number: US-ABBOTT-11P-163-0849732-00

PATIENT
  Sex: Male
  Weight: 93.07 kg

DRUGS (9)
  1. ASPIRIN [Concomitant]
     Indication: PRODUCT USED FOR UNKNOWN INDICATION
  2. OMEPRAZOLE [Concomitant]
     Indication: PRODUCT USED FOR UNKNOWN INDICATION
  3. HYDROCHLOROTHIAZIDE [Concomitant]
     Indication: BLOOD CHOLESTEROL INCREASED
     Route: 048
  4. LOSARTAN [Concomitant]
     Indication: HYPERTENSION
  5. FISH OIL [Concomitant]
     Indication: PRODUCT USED FOR UNKNOWN INDICATION
  6. NIASPAN [Suspect]
     Dosage: DECREASED HIS DOSE TO ONE 500 MILLIGRAM TABLET DAILY
     Dates: start: 20110801
  7. TOPROL-XL [Concomitant]
     Indication: HYPERTENSION
     Route: 048
  8. NIASPAN [Suspect]
     Indication: PRODUCT USED FOR UNKNOWN INDICATION
     Dosage: 500MG, 2 IN 1 DAY QHS
     Route: 048
     Dates: start: 20040101, end: 20110801
  9. FENASTERIDE [Concomitant]
     Indication: PRODUCT USED FOR UNKNOWN INDICATION
     Route: 048

REACTIONS (11)
  - FLUSHING [None]
  - GLUCOSE URINE PRESENT [None]
  - INCORRECT DOSE ADMINISTERED [None]
  - TYPE 2 DIABETES MELLITUS [None]
  - BLOOD GLUCOSE INCREASED [None]
  - TYPE 1 DIABETES MELLITUS [None]
  - SKIN BURNING SENSATION [None]
  - GLYCOSYLATED HAEMOGLOBIN INCREASED [None]
  - POLLAKIURIA [None]
  - PRURITUS [None]
  - GENERALISED ERYTHEMA [None]
